FAERS Safety Report 24581110 (Version 1)
Quarter: 2024Q4

REPORT INFORMATION
  Report Type: Spontaneous
  Country: US (occurrence: US)
  Receive Date: 20241105
  Receipt Date: 20241105
  Transmission Date: 20250115
  Serious: Yes (Other)
  Sender: GLAXOSMITHKLINE
  Company Number: US-GSK-US2024AMR134702

PATIENT

DRUGS (4)
  1. LAMICTAL [Interacting]
     Active Substance: LAMOTRIGINE
     Indication: Bipolar disorder
     Dosage: UNK
  2. AMOXICILLIN [Interacting]
     Active Substance: AMOXICILLIN
     Indication: Infection
     Dosage: UNK
  3. LISINOPRIL [Interacting]
     Active Substance: LISINOPRIL
     Indication: Product used for unknown indication
     Dosage: UNK
  4. INGREZZA [Interacting]
     Active Substance: VALBENAZINE
     Indication: Tardive dyskinesia
     Dosage: 80 MG
     Route: 048
     Dates: start: 20230630

REACTIONS (6)
  - Erythema multiforme [Recovering/Resolving]
  - Systemic lupus erythematosus [Recovering/Resolving]
  - Skin lesion [Recovering/Resolving]
  - Tooth disorder [Recovering/Resolving]
  - Rash [Recovering/Resolving]
  - Drug interaction [Unknown]

NARRATIVE: CASE EVENT DATE: 20231001
